FAERS Safety Report 19814475 (Version 1)
Quarter: 2021Q3

REPORT INFORMATION
  Report Type: Spontaneous
  Country: PL (occurrence: PL)
  Receive Date: 20210909
  Receipt Date: 20210909
  Transmission Date: 20211014
  Serious: Yes (Other)
  Sender: FDA-Public Use
  Company Number: PL-MYLANLABS-2021M1059510

PATIENT
  Age: 57 Year
  Sex: Male

DRUGS (2)
  1. ETOPOSIDE. [Suspect]
     Active Substance: ETOPOSIDE
     Indication: NEUROENDOCRINE TUMOUR OF THE LUNG METASTATIC
     Dosage: UNK
     Route: 065
  2. CISPLATIN. [Suspect]
     Active Substance: CISPLATIN
     Indication: NEUROENDOCRINE TUMOUR OF THE LUNG METASTATIC
     Dosage: UNK
     Route: 065

REACTIONS (2)
  - Neuroendocrine tumour of the lung metastatic [Unknown]
  - Malignant neoplasm progression [Unknown]
